FAERS Safety Report 13688768 (Version 1)
Quarter: 2017Q2

REPORT INFORMATION
  Report Type: Spontaneous
  Country: US (occurrence: US)
  Receive Date: 20170623
  Receipt Date: 20170623
  Transmission Date: 20170830
  Serious: Yes (Hospitalization, Disabling, Other)
  Sender: FDA-Public Use
  Company Number: None

PATIENT
  Age: 29 Year
  Sex: Male
  Weight: 90 kg

DRUGS (1)
  1. ALPRAZOLAM. [Suspect]
     Active Substance: ALPRAZOLAM
     Indication: SOCIAL ANXIETY DISORDER
     Dosage: ?          QUANTITY:120 TABLET(S);?
     Route: 048
     Dates: start: 20120801, end: 20140326

REACTIONS (7)
  - Major depression [None]
  - Insomnia [None]
  - Restlessness [None]
  - Nervous system disorder [None]
  - Drug use disorder [None]
  - Pain [None]
  - Hot flush [None]

NARRATIVE: CASE EVENT DATE: 20140326
